FAERS Safety Report 5793996-7 (Version None)
Quarter: 2008Q2

REPORT INFORMATION
  Report Type: 
  Country: None (occurrence: None)
  Receive Date: 20080627
  Receipt Date: 20080619
  Transmission Date: 20081010
  Serious: Yes (Other)
  Sender: FDA-Public Use
  Company Number: US-PFIZER INC-2007076773

PATIENT
  Sex: Female

DRUGS (2)
  1. CARDURA [Suspect]
  2. TOPROL-XL [Suspect]

REACTIONS (15)
  - ANXIETY [None]
  - COUGH [None]
  - DIZZINESS [None]
  - DRY EYE [None]
  - DRY MOUTH [None]
  - DRY THROAT [None]
  - FLUID RETENTION [None]
  - GALLBLADDER OPERATION [None]
  - GASTROINTESTINAL PAIN [None]
  - HEADACHE [None]
  - HEPATIC PAIN [None]
  - HYPERTENSION [None]
  - NASAL DRYNESS [None]
  - NAUSEA [None]
  - RENAL PAIN [None]
